FAERS Safety Report 6779124-X (Version None)
Quarter: 2010Q2

REPORT INFORMATION
  Report Type: 
  Country: None (occurrence: None)
  Receive Date: 20100618
  Receipt Date: 20100608
  Transmission Date: 20101027
  Serious: Yes (Other)
  Sender: FDA-Public Use
  Company Number: US-PFIZER INC-2010073451

PATIENT
  Sex: Male
  Weight: 75.283 kg

DRUGS (1)
  1. VIAGRA [Suspect]
     Indication: ERECTILE DYSFUNCTION
     Dosage: 100 MG, AS NEEDED
     Route: 048
     Dates: start: 20100528

REACTIONS (5)
  - BLOOD TESTOSTERONE ABNORMAL [None]
  - DIPLOPIA [None]
  - DRUG INEFFECTIVE [None]
  - MIGRAINE [None]
  - NAUSEA [None]
